FAERS Safety Report 14789549 (Version 9)
Quarter: 2018Q3

REPORT INFORMATION
  Report Type: Spontaneous
  Country: DE (occurrence: DE)
  Receive Date: 20180423
  Receipt Date: 20180816
  Transmission Date: 20181010
  Serious: Yes (Other)
  Sender: FDA-Public Use
  Company Number: DE-TEVA-2018-DE-883927

PATIENT
  Age: 56 Year
  Sex: Female
  Weight: 59 kg

DRUGS (14)
  1. ESTRADIOL. [Suspect]
     Active Substance: ESTRADIOL
     Indication: MENOPAUSAL SYMPTOMS
     Dosage: 1 MILLIGRAM DAILY; 1 PUFF DAILY.
     Route: 062
     Dates: start: 201701, end: 201705
  2. ESTRADIOL. [Suspect]
     Active Substance: ESTRADIOL
     Indication: HORMONE REPLACEMENT THERAPY
     Dosage: 1 DOSAGE FORMS DAILY; 1 PUFF DAILY (1 DOSAGE FORMS, 1 IN 1D)
     Route: 062
     Dates: start: 2012
  3. PROGESTAN [Suspect]
     Active Substance: PROGESTERONE
     Dosage: 1 CAPSULE EVERY SECOND EVENING.
     Route: 048
     Dates: start: 201701, end: 201705
  4. PROGESTAN [Suspect]
     Active Substance: PROGESTERONE
     Indication: PREVENTION OF ENDOMETRIAL HYPERPLASIA
     Dosage: 1 DOSAGE FORMS DAILY; 1 CAPSULE DAILY
     Route: 048
     Dates: start: 201711, end: 20180119
  5. LERCANIDIPINE [Suspect]
     Active Substance: LERCANIDIPINE
     Indication: HYPERTENSION
     Route: 065
     Dates: end: 2018
  6. L?THYROXIN [Concomitant]
     Active Substance: LEVOTHYROXINE SODIUM
     Indication: HYPOTHYROIDISM
     Dosage: 50 MICROGRAM DAILY; 50 MICROGRAM DAILY
     Route: 065
  7. ESTRADIOL. [Suspect]
     Active Substance: ESTRADIOL
     Indication: MENOPAUSAL SYMPTOMS
     Dosage: 1 MILLIGRAM DAILY; 1 PUFF DAILY (1 DOSAGE FORMS, 1 IN 1D)
     Route: 062
     Dates: start: 201711, end: 20180119
  8. LERCANIDIPINE [Concomitant]
     Active Substance: LERCANIDIPINE
     Indication: HYPERTENSION
     Route: 065
  9. GYNOKADIN [Suspect]
     Active Substance: ESTRADIOL
     Indication: MENOPAUSAL SYMPTOMS
     Dosage: 1 DOSAGE FORMS DAILY; 1 PUFF DAILY
     Route: 062
     Dates: start: 2012, end: 20180119
  10. PROGESTAN [Suspect]
     Active Substance: PROGESTERONE
     Dosage: 1 DOSAGE FORMS DAILY; ?1 CAPSULE DAILY (FROM JAN ? MAY 2017: 1 CAPSULE EVERY SECOND DAY; STOPPED FRO
     Route: 048
     Dates: start: 2012, end: 201701
  11. RAMIPRIL. [Concomitant]
     Active Substance: RAMIPRIL
     Indication: HYPERTENSION
     Dosage: UNKNOWN
     Route: 065
  12. GYNOKADIN [Suspect]
     Active Substance: ESTRADIOL
     Indication: HORMONE REPLACEMENT THERAPY
     Dosage: 2 MILLIGRAM DAILY; 2 PUFFS DAILY.?2 PUFFS DAILY (FROM JAN ? MAY 2017: 1 PUFF DAILY; STOPPED FROM MAY
     Route: 062
     Dates: start: 2012, end: 201701
  13. PASCOFLAIR [Concomitant]
     Indication: MENOPAUSAL DISORDER
     Route: 065
  14. GYNOKADIN [Suspect]
     Active Substance: ESTRADIOL
     Dosage: 1 PUFF DAILY
     Route: 062
     Dates: start: 201701, end: 201705

REACTIONS (10)
  - Off label use [Not Recovered/Not Resolved]
  - Blood alkaline phosphatase increased [Not Recovered/Not Resolved]
  - Transaminases increased [Not Recovered/Not Resolved]
  - Gamma-glutamyltransferase increased [Not Recovered/Not Resolved]
  - Blood lactate dehydrogenase increased [Not Recovered/Not Resolved]
  - Thrombocytopenia [Not Recovered/Not Resolved]
  - Ultrasound liver abnormal [Not Recovered/Not Resolved]
  - Nausea [Recovering/Resolving]
  - Asthenia [Recovered/Resolved]
  - Fatigue [Recovering/Resolving]

NARRATIVE: CASE EVENT DATE: 2017
